FAERS Safety Report 9370949 (Version 1)
Quarter: 2013Q2

REPORT INFORMATION
  Report Type: Report from Study
  Country: CA (occurrence: CA)
  Receive Date: 20130627
  Receipt Date: 20130627
  Transmission Date: 20140414
  Serious: Yes (Other)
  Sender: FDA-Public Use
  Company Number: CA-ROCHE-1241832

PATIENT
  Sex: Male

DRUGS (7)
  1. ACTEMRA [Suspect]
     Indication: RHEUMATOID ARTHRITIS
     Dosage: LAST DOSE WAS ON 16/MAY/2012
     Route: 042
     Dates: start: 20110323
  2. CELEBREX [Concomitant]
  3. LYRICA [Concomitant]
  4. OXYCONTIN [Concomitant]
  5. VITAMIN C [Concomitant]
  6. PREDNISONE [Concomitant]
  7. OMEGA 3 [Concomitant]

REACTIONS (1)
  - Uveitis [Unknown]
